FAERS Safety Report 26186360 (Version 1)
Quarter: 2025Q4

REPORT INFORMATION
  Report Type: Spontaneous
  Country: US (occurrence: None)
  Receive Date: 20251219
  Receipt Date: 20251219
  Transmission Date: 20260117
  Serious: Yes (Hospitalization)
  Sender: FDA-CTU
  Company Number: None

PATIENT
  Age: 74 Year
  Sex: Male

DRUGS (11)
  1. CAPECITABINE [Suspect]
     Active Substance: CAPECITABINE
     Indication: Colon cancer
     Dosage: 2800 MG BID ORAL
     Route: 048
     Dates: start: 20251008
  2. ALBUTEROL SULFATE [Concomitant]
     Active Substance: ALBUTEROL SULFATE
  3. TORSEMIDE [Suspect]
     Active Substance: TORSEMIDE
  4. PROCHLORPERAZINE [Concomitant]
     Active Substance: PROCHLORPERAZINE
  5. POTASSIUM CHLORIDE [Concomitant]
     Active Substance: POTASSIUM CHLORIDE
  6. ONDANSETRON [Concomitant]
     Active Substance: ONDANSETRON
  7. OMEPRAZOLE [Concomitant]
     Active Substance: OMEPRAZOLE
  8. METOPROLOL SUCCINATE [Concomitant]
     Active Substance: METOPROLOL SUCCINATE
  9. FAMOTIDINE [Concomitant]
     Active Substance: FAMOTIDINE
  10. DILTIAZEM [Concomitant]
     Active Substance: DILTIAZEM
  11. XARELTO [Concomitant]
     Active Substance: RIVAROXABAN

REACTIONS (7)
  - Diarrhoea [None]
  - Anal incontinence [None]
  - Blood potassium decreased [None]
  - Dehydration [None]
  - Fall [None]
  - Therapy cessation [None]
  - Drug ineffective [None]

NARRATIVE: CASE EVENT DATE: 20251130
